FAERS Safety Report 5819698-6 (Version None)
Quarter: 2008Q3

REPORT INFORMATION
  Report Type: 
  Country: None (occurrence: None)
  Receive Date: 20080723
  Receipt Date: 20080710
  Transmission Date: 20090109
  Serious: Yes (Hospitalization)
  Sender: FDA-Public Use
  Company Number: US-ELI_LILLY_AND_COMPANY-US200807001945

PATIENT
  Sex: Female

DRUGS (3)
  1. FORTEO [Suspect]
     Indication: OSTEOPOROSIS
     Dates: start: 20080520
  2. CALCIUM [Concomitant]
  3. VITAMINS NOS [Concomitant]

REACTIONS (2)
  - ATRIAL FIBRILLATION [None]
  - VISUAL IMPAIRMENT [None]
